FAERS Safety Report 4300941-X (Version None)
Quarter: 2004Q1

REPORT INFORMATION
  Report Type: 
  Country: None (occurrence: None)
  Receive Date: 20040219
  Receipt Date: 20040210
  Transmission Date: 20041129
  Serious: Yes (Hospitalization)
  Sender: FDA-Public Use
  Company Number: 2004SE00695

PATIENT
  Age: 40 Year
  Sex: Female

DRUGS (8)
  1. BLOPRESS [Suspect]
     Indication: HYPERTENSION
     Dosage: 8 MG DAILY PO
     Dates: start: 20040128, end: 20040202
  2. PARDOCLIN [Suspect]
     Dosage: 50 MG BID IVD
     Dates: start: 20040126, end: 20040129
  3. LACTEC [Concomitant]
  4. NIFEDIPINE [Concomitant]
  5. AMBROXOL HYDROCHLORIDE [Concomitant]
  6. ASCORBIC ACID [Concomitant]
  7. STREPTOCOCCUS FAECALIS [Concomitant]
  8. TEPRENONE [Concomitant]

REACTIONS (2)
  - DRUG ERUPTION [None]
  - ERYTHEMA MULTIFORME [None]
